FAERS Safety Report 7852651-X (Version None)
Quarter: 2011Q4

REPORT INFORMATION
  Report Type: 
  Country: None (occurrence: None)
  Receive Date: 20111026
  Receipt Date: 20111019
  Transmission Date: 20120403
  Serious: Yes (Hospitalization)
  Sender: FDA-Public Use
  Company Number: FR-GLAXOSMITHKLINE-B0756555A

PATIENT
  Age: 64 Year
  Sex: Female
  Weight: 76 kg

DRUGS (14)
  1. GLUCOPHAGE [Concomitant]
     Dosage: 2000MG PER DAY
     Route: 048
  2. PLAVIX [Concomitant]
     Dosage: 1TAB PER DAY
     Route: 048
  3. PAROXETINE HCL [Suspect]
     Indication: PRODUCT USED FOR UNKNOWN INDICATION
     Dosage: 20MG PER DAY
     Route: 048
  4. BOTULINUM A TOXIN [Suspect]
     Dosage: 1300UNIT PER DAY
     Route: 030
     Dates: start: 20110628, end: 20110628
  5. ATORVASTATIN CALCIUM [Concomitant]
     Dosage: 40MG PER DAY
     Route: 048
  6. REPAGLINIDE [Concomitant]
     Dosage: 4MG PER DAY
     Route: 065
  7. PRAXILENE [Concomitant]
     Dosage: 600MG PER DAY
     Route: 048
  8. CANDESARTAN CILEXETIL AND HYDROCHLOROTHIAZIDE [Concomitant]
     Dosage: 28.5MG PER DAY
     Route: 048
  9. NEXIUM [Concomitant]
     Dosage: 40MG PER DAY
     Route: 048
  10. PERINDOPRIL ERBUMINE [Concomitant]
     Route: 065
  11. NICARDIPINE HCL [Concomitant]
     Dosage: 50MG PER DAY
     Route: 048
  12. LANTUS [Concomitant]
     Dosage: 4IU PER DAY
     Route: 065
     Dates: start: 20110609
  13. EUPRESSYL [Concomitant]
     Dosage: 120MG PER DAY
     Route: 048
  14. ALLOPURINOL [Concomitant]
     Dosage: 200MG PER DAY
     Route: 048

REACTIONS (5)
  - FALL [None]
  - DYSPHAGIA [None]
  - MALAISE [None]
  - SKELETAL INJURY [None]
  - CATAPLEXY [None]
